FAERS Safety Report 9308822 (Version 2)
Quarter: 2013Q2

REPORT INFORMATION
  Report Type: Spontaneous
  Country: ZA (occurrence: ZA)
  Receive Date: 20130524
  Receipt Date: 20130628
  Transmission Date: 20140414
  Serious: Yes (Hospitalization)
  Sender: FDA-Public Use
  Company Number: ZA-ELI_LILLY_AND_COMPANY-ZA201305004972

PATIENT
  Sex: Male

DRUGS (9)
  1. HUMALOG 25% LISPRO, 75% NPL [Suspect]
     Indication: DIABETES MELLITUS
     Dosage: 32 DF, UNK
     Route: 058
     Dates: start: 2012
  2. HUMALOG 25% LISPRO, 75% NPL [Suspect]
     Dosage: UNK, UNKNOWN
  3. HUMALOG 25% LISPRO, 75% NPL [Suspect]
     Dosage: 32 DF, UNKNOWN
  4. METFORMIN [Concomitant]
     Indication: DIABETES MELLITUS
     Dosage: 500 MG, BID
     Dates: start: 1999, end: 20130427
  5. METFORMIN [Concomitant]
     Dosage: 1000 MG, BID
     Route: 048
     Dates: start: 20130428, end: 20130504
  6. METFORMIN [Concomitant]
     Dosage: 500 MG, BID
     Route: 048
     Dates: start: 20130505
  7. DIABION [Concomitant]
     Dosage: 1 DF, QD
     Route: 048
  8. TAREG [Concomitant]
     Indication: HYPERTENSION
     Dosage: 1 DF, QD
     Route: 048
     Dates: start: 2012
  9. VOLTAREN                           /00372301/ [Concomitant]
     Indication: PAIN
     Dosage: 75 MG, PRN
     Route: 048
     Dates: start: 20130424

REACTIONS (3)
  - Influenza [Recovered/Resolved]
  - Blood glucose increased [Recovered/Resolved]
  - Back pain [Recovered/Resolved]
